FAERS Safety Report 7473600-2 (Version None)
Quarter: 2011Q1

REPORT INFORMATION
  Report Type: 
  Country: None (occurrence: None)
  Receive Date: 20110302
  Receipt Date: 20101004
  Transmission Date: 20110831
  Serious: Yes (Death)
  Sender: FDA-Public Use
  Company Number: 163-21880-10081435

PATIENT
  Age: 81 Year
  Sex: Female

DRUGS (3)
  1. PROCRIT [Concomitant]
  2. REVLIMID [Suspect]
     Indication: MYELODYSPLASTIC SYNDROME
     Dosage: 5 MG, EVERY 28 DAYS, PO; 5 MG, EVERY 28 DAYS, PO
     Route: 048
     Dates: start: 20080415, end: 20080722
  3. REVLIMID [Suspect]
     Indication: MYELODYSPLASTIC SYNDROME
     Dosage: 5 MG, EVERY 28 DAYS, PO; 5 MG, EVERY 28 DAYS, PO
     Route: 048
     Dates: end: 20091012

REACTIONS (1)
  - MULTIPLE MYELOMA [None]
